FAERS Safety Report 5248649-0 (Version None)
Quarter: 2007Q1

REPORT INFORMATION
  Report Type: 
  Country: None (occurrence: None)
  Receive Date: 20070226
  Receipt Date: 20070226
  Transmission Date: 20070707
  Serious: No
  Sender: FDA-Public Use
  Company Number: None

PATIENT
  Age: 73 Year
  Sex: Female
  Weight: 72.5755 kg

DRUGS (1)
  1. RYTHMOL SR [Suspect]
     Dosage: 1 CAPSULE EVERY 12 HOURS PO
     Route: 048
     Dates: start: 20070222, end: 20070223

REACTIONS (5)
  - ANXIETY [None]
  - DYSPNOEA [None]
  - FATIGUE [None]
  - HEART RATE INCREASED [None]
  - HEART RATE IRREGULAR [None]
